FAERS Safety Report 6916605-X (Version None)
Quarter: 2010Q3

REPORT INFORMATION
  Report Type: 
  Country: None (occurrence: None)
  Receive Date: 20100809
  Receipt Date: 20100809
  Transmission Date: 20110219
  Serious: Yes (Hospitalization)
  Sender: FDA-Public Use
  Company Number: None

PATIENT
  Age: 64 Year
  Sex: Male

DRUGS (2)
  1. CETUXIMAB 250MG/M2 [Suspect]
     Indication: NON-SMALL CELL LUNG CANCER
     Dosage: 492.5MG WEEKLY IV
     Route: 042
     Dates: start: 20100802, end: 20100802
  2. ERLOTINIB 150MG 150MG TAB [Suspect]
     Indication: NON-SMALL CELL LUNG CANCER
     Dosage: 150MG DAILY PO
     Route: 048
     Dates: start: 20100802, end: 20100804

REACTIONS (2)
  - OEDEMA PERIPHERAL [None]
  - PNEUMONIA [None]
